FAERS Safety Report 10252554 (Version 2)
Quarter: 2014Q3

REPORT INFORMATION
  Report Type: Report from Study
  Country: AR (occurrence: AR)
  Receive Date: 20140623
  Receipt Date: 20140708
  Transmission Date: 20150326
  Serious: Yes (Hospitalization, Other)
  Sender: FDA-Public Use
  Company Number: PHHY2014AR076831

PATIENT
  Sex: Female

DRUGS (2)
  1. TRANQUILAN [Concomitant]
     Indication: SLEEP DISORDER
     Dosage: 2 MG, UNK
  2. EXFORGE [Suspect]
     Active Substance: AMLODIPINE BESYLATE\VALSARTAN
     Indication: BLOOD PRESSURE DIASTOLIC INCREASED
     Dosage: UNK 160/5MG, DAILY
     Route: 048

REACTIONS (10)
  - Renal cyst [Unknown]
  - Nervousness [Unknown]
  - Feeling abnormal [Unknown]
  - Stress [Unknown]
  - Malaise [Unknown]
  - Depression [Unknown]
  - Insomnia [Unknown]
  - Bronchospasm [Unknown]
  - Oropharyngeal pain [Unknown]
  - Bronchitis [Unknown]
